FAERS Safety Report 5829562-4 (Version None)
Quarter: 2008Q3

REPORT INFORMATION
  Report Type: 
  Country: None (occurrence: None)
  Receive Date: 20080729
  Receipt Date: 20080722
  Transmission Date: 20090109
  Serious: No
  Sender: FDA-Public Use
  Company Number: 20084748

PATIENT
  Sex: Male

DRUGS (2)
  1. LIORESAL [Suspect]
     Indication: MUSCLE SPASTICITY
     Dosage: 0.155 MG, DAILY, INTRATHECAL
     Route: 037
  2. UNSPECIFIED INTRAVENOUS ANTIBIOTICS [Concomitant]

REACTIONS (6)
  - DEVICE RELATED INFECTION [None]
  - DRUG WITHDRAWAL SYNDROME [None]
  - POCKET EROSION [None]
  - STAPHYLOCOCCAL INFECTION [None]
  - TACHYCARDIA [None]
  - WOUND DEHISCENCE [None]
